FAERS Safety Report 23647332 (Version 2)
Quarter: 2024Q2

REPORT INFORMATION
  Report Type: Spontaneous
  Country: FR (occurrence: FR)
  Receive Date: 20240319
  Receipt Date: 20240430
  Transmission Date: 20240715
  Serious: Yes (Hospitalization, Other)
  Sender: FDA-Public Use
  Company Number: FR-009507513-2402FRA000621

PATIENT
  Age: 47 Year
  Sex: Female
  Weight: 55 kg

DRUGS (9)
  1. CARBOPLATIN [Suspect]
     Active Substance: CARBOPLATIN
     Indication: Triple negative breast cancer
     Dosage: 1.5 AREA UNDER CURVE (AUC) EVERY 7 DAYS.
     Route: 042
     Dates: start: 20231115, end: 20240201
  2. PACLITAXEL [Suspect]
     Active Substance: PACLITAXEL
     Indication: Triple negative breast cancer
     Dosage: 80 MILLIGRAM/SQ. METER, EVERY 7 DAYS
     Route: 042
     Dates: start: 20231115, end: 20240201
  3. KEYTRUDA [Suspect]
     Active Substance: PEMBROLIZUMAB
     Indication: Triple negative breast cancer
     Dosage: 200 MILLIGRAM, Q3W
     Route: 042
     Dates: start: 20231115, end: 20240201
  4. KEYTRUDA [Suspect]
     Active Substance: PEMBROLIZUMAB
     Dosage: 200 MILLIGRAM, Q3W
     Route: 042
     Dates: start: 20231206, end: 20231206
  5. KEYTRUDA [Suspect]
     Active Substance: PEMBROLIZUMAB
     Dosage: 200 MILLIGRAM, Q3W
     Route: 042
     Dates: start: 20231227, end: 20231227
  6. KEYTRUDA [Suspect]
     Active Substance: PEMBROLIZUMAB
     Dosage: 200 MILLIGRAM, Q3W
     Route: 042
     Dates: start: 20240114, end: 20240114
  7. ONDANSETRON [Concomitant]
     Active Substance: ONDANSETRON
     Indication: Prophylaxis
     Dosage: UNK UNK, QW (7 DAYS)
     Route: 065
     Dates: start: 20231115
  8. POLARAMINE [Concomitant]
     Active Substance: DEXCHLORPHENIRAMINE MALEATE
     Indication: Prophylaxis
     Dosage: UNK UNK, QW (7 DAYS)
     Route: 065
     Dates: start: 20231115
  9. SOLU-MEDROL [Concomitant]
     Active Substance: METHYLPREDNISOLONE SODIUM SUCCINATE
     Indication: Prophylaxis
     Dosage: UNK UNK, QW (7 DAYS)
     Route: 065
     Dates: start: 20231115

REACTIONS (4)
  - Glucocorticoid deficiency [Recovering/Resolving]
  - Endocrine toxicity [Recovering/Resolving]
  - Hepatic enzyme increased [Recovering/Resolving]
  - Hepatotoxicity [Recovering/Resolving]

NARRATIVE: CASE EVENT DATE: 20231226
